FAERS Safety Report 7325109-4 (Version None)
Quarter: 2011Q1

REPORT INFORMATION
  Report Type: 
  Country: None (occurrence: None)
  Receive Date: 20110302
  Receipt Date: 20110217
  Transmission Date: 20110831
  Serious: No
  Sender: FDA-Public Use
  Company Number: US-BIOGENIDEC-2011BI002801

PATIENT
  Age: 46 Year
  Sex: Female

DRUGS (2)
  1. TYSABRI [Suspect]
     Indication: MULTIPLE SCLEROSIS
     Route: 042
     Dates: start: 20101015, end: 20101210
  2. TYSABRI [Suspect]
     Route: 042
     Dates: start: 20100709, end: 20100903

REACTIONS (5)
  - LYME DISEASE [None]
  - MUSCULAR WEAKNESS [None]
  - DRUG INEFFECTIVE [None]
  - COELIAC DISEASE [None]
  - GAIT DISTURBANCE [None]
